FAERS Safety Report 10010229 (Version 2)
Quarter: 2015Q2

REPORT INFORMATION
  Report Type: Spontaneous
  Country: GB (occurrence: GB)
  Receive Date: 20140313
  Receipt Date: 20150529
  Transmission Date: 20150821
  Serious: Yes (Other)
  Sender: FDA-Public Use
  Company Number: GB-009507513-1403GBR003074

PATIENT
  Sex: Female

DRUGS (7)
  1. CETIRIZINE HYDROCHLORIDE. [Suspect]
     Active Substance: CETIRIZINE HYDROCHLORIDE
     Dosage: 10 MG DAILY
     Route: 065
  2. MONTELUKAST SODIUM. [Suspect]
     Active Substance: MONTELUKAST SODIUM
     Dosage: 10 MG, QD, NOCTURNAL, FOR TWO WEEKS
     Route: 065
     Dates: start: 201309, end: 2013
  3. CYCLOSPORINE. [Suspect]
     Active Substance: CYCLOSPORINE
     Dosage: FOR A MONTH
     Route: 065
     Dates: start: 201310, end: 201311
  4. RANITIDINE [Suspect]
     Active Substance: RANITIDINE\RANITIDINE HYDROCHLORIDE
     Indication: CHRONIC SPONTANEOUS URTICARIA
     Dosage: 150 MG, BID
     Route: 065
  5. HYDROXYZINE [Suspect]
     Active Substance: HYDROXYZINE\HYDROXYZINE HYDROCHLORIDE
     Dosage: 50 MG, QD
     Route: 065
  6. MONTELUKAST SODIUM. [Suspect]
     Active Substance: MONTELUKAST SODIUM
     Dosage: ANOTHER DOSAGE
  7. FEXOFENADINE HYDROCHLORIDE. [Suspect]
     Active Substance: FEXOFENADINE HYDROCHLORIDE
     Dosage: 360 MG DIALY
     Route: 065

REACTIONS (6)
  - Condition aggravated [Recovering/Resolving]
  - Chronic spontaneous urticaria [Recovering/Resolving]
  - Insomnia [Unknown]
  - Angioedema [Unknown]
  - Drug ineffective [Unknown]
  - Pruritus [Unknown]
